FAERS Safety Report 4748539-3 (Version None)
Quarter: 2005Q3

REPORT INFORMATION
  Report Type: 
  Country: None (occurrence: None)
  Receive Date: 20050819
  Receipt Date: 20050114
  Transmission Date: 20060218
  Serious: Yes (Disabling)
  Sender: FDA-Public Use
  Company Number: DK-BOEHRINGER INGELHEIM PHARMACEUTICALS, INC.-2005-SW-00039DB

PATIENT
  Sex: Male
  Weight: 68 kg

DRUGS (1)
  1. SIFROL TAB 0.088 MG [Suspect]
     Indication: PARKINSON'S DISEASE
     Route: 048
     Dates: start: 20041119, end: 20041215

REACTIONS (8)
  - ANOREXIA [None]
  - CONDITION AGGRAVATED [None]
  - DEPRESSION [None]
  - DIZZINESS [None]
  - INSOMNIA [None]
  - PARKINSON'S DISEASE [None]
  - RESTLESSNESS [None]
  - TREMOR [None]
